FAERS Safety Report 7473319-8 (Version None)
Quarter: 2011Q2

REPORT INFORMATION
  Report Type: 
  Country: None (occurrence: None)
  Receive Date: 20110503
  Receipt Date: 20110418
  Transmission Date: 20111010
  Serious: Yes (Other)
  Sender: FDA-Public Use
  Company Number: 8054282

PATIENT
  Sex: Female

DRUGS (11)
  1. IGG PURISSIMUS [Concomitant]
  2. TOPAMAX [Concomitant]
  3. PEPCID [Concomitant]
  4. FOLIC ACID [Suspect]
     Indication: PREGNANCY
     Dosage: (400 ?G BID ORAL)
     Route: 048
  5. MULTI-VITAMINS [Concomitant]
  6. ASPIRIN [Concomitant]
  7. PRENATAL VITAMINS /01549301/ [Concomitant]
  8. DOCOSAHEXANOIC ACID [Concomitant]
  9. KEPPRA [Suspect]
     Indication: EPILEPSY
     Dosage: (1000 MG QD, DOSE FREQ.: DAILY), (1000 MG QD, DOSE FREQ.: DAILY)
     Dates: start: 20091105
  10. KEPPRA [Suspect]
     Indication: EPILEPSY
     Dosage: (1000 MG QD, DOSE FREQ.: DAILY), (1000 MG QD, DOSE FREQ.: DAILY)
     Dates: end: 20091004
  11. KEPPRA [Suspect]
     Indication: EPILEPSY
     Dosage: (1000 MG QD)
     Dates: start: 20091005, end: 20091104

REACTIONS (3)
  - VITAMIN D DEFICIENCY [None]
  - DRUG EXPOSURE DURING PREGNANCY [None]
  - COMPLEX PARTIAL SEIZURES [None]
